FAERS Safety Report 10247895 (Version 1)
Quarter: 2014Q2

REPORT INFORMATION
  Report Type: Spontaneous
  Country: CH (occurrence: CH)
  Receive Date: 20140619
  Receipt Date: 20140619
  Transmission Date: 20141212
  Serious: Yes (Hospitalization, Other)
  Sender: FDA-Public Use
  Company Number: CH-WATSON-2014-13843

PATIENT
  Age: 14 Year
  Sex: Male

DRUGS (1)
  1. BACLOFEN (UNKNOWN) [Suspect]
     Indication: CEREBRAL PALSY
     Dosage: 300 ?G, DAILY
     Route: 037

REACTIONS (2)
  - Hiatus hernia [Recovered/Resolved]
  - Condition aggravated [Recovered/Resolved]
